FAERS Safety Report 14937565 (Version 1)
Quarter: 2018Q2

REPORT INFORMATION
  Report Type: Spontaneous
  Country: DE (occurrence: DE)
  Receive Date: 20180525
  Receipt Date: 20180525
  Transmission Date: 20180711
  Serious: Yes (Other)
  Sender: FDA-Public Use
  Company Number: DE-TEVA-2018-DE-896418

PATIENT
  Age: 62 Year
  Sex: Female

DRUGS (1)
  1. DIRCLOFENAC RETRARDKAPSELN 75 MG [Suspect]
     Active Substance: DICLOFENAC
     Route: 048

REACTIONS (1)
  - Atrial fibrillation [Unknown]
